FAERS Safety Report 5340369-7 (Version None)
Quarter: 2007Q2

REPORT INFORMATION
  Report Type: 
  Country: None (occurrence: None)
  Receive Date: 20070405
  Receipt Date: 20070122
  Transmission Date: 20071010
  Serious: Yes (Other)
  Sender: FDA-Public Use
  Company Number: US200701001364

PATIENT
  Age: 54 Year
  Sex: Male

DRUGS (3)
  1. CYMBALTA [Suspect]
     Dosage: 30 MG
     Dates: start: 20061101
  2. DIAZEPAM [Concomitant]
  3. CANNABIS (CANNABIS) [Concomitant]

REACTIONS (2)
  - CONVULSION [None]
  - NAUSEA [None]
